FAERS Safety Report 6639951-6 (Version None)
Quarter: 2010Q1

REPORT INFORMATION
  Report Type: 
  Country: None (occurrence: None)
  Receive Date: 20100318
  Receipt Date: 20100204
  Transmission Date: 20100710
  Serious: Yes (Other)
  Sender: FDA-Public Use
  Company Number: US-BAYER-201013249NA

PATIENT
  Age: 86 Year
  Sex: Female

DRUGS (3)
  1. AVELOX [Suspect]
     Indication: BRONCHIECTASIS
     Route: 048
  2. FLONASE [Concomitant]
     Indication: BRONCHIECTASIS
  3. UNKNOWN ANTIBIOTICS [Concomitant]
     Indication: BRONCHIECTASIS

REACTIONS (1)
  - ATRIAL FIBRILLATION [None]
